FAERS Safety Report 23224222 (Version 1)
Quarter: 2023Q4

REPORT INFORMATION
  Report Type: Spontaneous
  Country: US (occurrence: US)
  Receive Date: 20231124
  Receipt Date: 20231124
  Transmission Date: 20240110
  Serious: Yes (Hospitalization)
  Sender: FDA-Public Use
  Company Number: US-ROCHE-3455475

PATIENT
  Age: 70 Year
  Sex: Female
  Weight: 63.4 kg

DRUGS (27)
  1. CLONAZEPAM [Suspect]
     Active Substance: CLONAZEPAM
     Indication: B-cell lymphoma
     Dosage: DAILY DOSE: 3 MILLIGRAM
     Route: 048
  2. CLONAZEPAM [Suspect]
     Active Substance: CLONAZEPAM
     Indication: B-cell lymphoma
     Dosage: DAILY DOSE: 3 MILLIGRAM
     Route: 048
  3. RITUXIMAB [Suspect]
     Active Substance: RITUXIMAB
     Indication: B-cell lymphoma
     Route: 042
     Dates: start: 20220713
  4. RITUXIMAB [Suspect]
     Active Substance: RITUXIMAB
     Indication: B-cell lymphoma
     Dosage: WHICH WAS AGAIN RE ADMINISTERED
     Dates: start: 20220804
  5. RITUXIMAB [Suspect]
     Active Substance: RITUXIMAB
     Indication: B-cell lymphoma
     Dosage: WHICH WAS AGAIN RE ADMINISTERED
     Dates: start: 20230515
  6. RITUXIMAB [Suspect]
     Active Substance: RITUXIMAB
     Indication: B-cell lymphoma
     Dosage: WHICH WAS AGAIN RE ADMINISTERED
     Dates: start: 20230720
  7. RITUXIMAB [Suspect]
     Active Substance: RITUXIMAB
     Indication: B-cell lymphoma
     Dosage: WHICH WAS AGAIN RE ADMINISTERED
     Dates: start: 20230727
  8. RITUXIMAB [Suspect]
     Active Substance: RITUXIMAB
     Indication: B-cell lymphoma
     Route: 042
  9. BENDEKA [Suspect]
     Active Substance: BENDAMUSTINE HYDROCHLORIDE
     Route: 042
     Dates: start: 20230515
  10. ZANUBRUTINIB [Suspect]
     Active Substance: ZANUBRUTINIB
     Dates: start: 20230515
  11. VENETOCLAX [Suspect]
     Active Substance: VENETOCLAX
     Dates: start: 20230515
  12. TYLENOL [Concomitant]
     Active Substance: ACETAMINOPHEN
     Dosage: DAILY DOSE: 1000 MILLIGRAM
     Route: 048
  13. ACYCLOVIR [Concomitant]
     Active Substance: ACYCLOVIR
     Dosage: DAILY DOSE: 800 MILLIGRAM
     Route: 048
  14. AMIODARONE HYDROCHLORIDE [Concomitant]
     Active Substance: AMIODARONE HYDROCHLORIDE
     Dosage: DAILY DOSE: 400 MILLIGRAM
     Route: 048
  15. CEPHALEXIN [Concomitant]
     Active Substance: CEPHALEXIN
     Dosage: DAILY DOSE: 500 MILLIGRAM
     Route: 048
  16. DESONIDE [Concomitant]
     Active Substance: DESONIDE
     Dosage: DAILY DOSE: 0.025 PERCENT
     Route: 061
  17. DROXIDOPA [Concomitant]
     Active Substance: DROXIDOPA
     Dosage: 2 CAPSULES?DAILY DOSE: 900 MILLIGRAM
     Route: 048
  18. LEXAPRO [Concomitant]
     Active Substance: ESCITALOPRAM OXALATE
     Dosage: DAILY DOSE: 20 MILLIGRAM
     Route: 048
  19. FEXOFENADINE HYDROCHLORIDE [Concomitant]
     Active Substance: FEXOFENADINE HYDROCHLORIDE
     Dosage: DAILY DOSE: 180 MILLIGRAM
     Route: 048
  20. FLUOCINONIDE [Concomitant]
     Active Substance: FLUOCINONIDE
  21. PRAMOSONE [Concomitant]
     Active Substance: HYDROCORTISONE ACETATE\PRAMOXINE HYDROCHLORIDE
     Dosage: 2 - 5.1%
     Route: 061
  22. KETOCONAZOLE [Concomitant]
     Active Substance: KETOCONAZOLE
  23. MIDODRINE HYDROCHLORIDE [Concomitant]
     Active Substance: MIDODRINE HYDROCHLORIDE
     Dosage: DAILY DOSE: 15 MILLIGRAM
     Route: 048
  24. NORTRIPTYLINE HYDROCHLORIDE [Concomitant]
     Active Substance: NORTRIPTYLINE HYDROCHLORIDE
     Dosage: DAILY DOSE: 50 MILLIGRAM
     Route: 048
  25. TRIAMCINOLONE ACETONIDE [Concomitant]
     Active Substance: TRIAMCINOLONE ACETONIDE
     Dosage: DAILY DOSE: 0.2 PERCENT
     Route: 061
  26. DUPIXENT [Suspect]
     Active Substance: DUPILUMAB
     Dates: start: 20230515
  27. DARATUMUMAB [Suspect]
     Active Substance: DARATUMUMAB
     Dates: start: 20230515

REACTIONS (13)
  - Ventricular tachycardia [Unknown]
  - Syncope [Unknown]
  - Pruritus [Unknown]
  - Dry skin [Unknown]
  - Rash [Unknown]
  - Fatigue [Unknown]
  - Dyspnoea [Unknown]
  - Palpitations [Unknown]
  - Muscular weakness [Unknown]
  - Dizziness [Unknown]
  - Orthostatic hypotension [Unknown]
  - Appetite disorder [Unknown]
  - Off label use [Unknown]

NARRATIVE: CASE EVENT DATE: 20211201
